FAERS Safety Report 6257088-5 (Version None)
Quarter: 2009Q3

REPORT INFORMATION
  Report Type: 
  Country: None (occurrence: None)
  Receive Date: 20090706
  Receipt Date: 20090623
  Transmission Date: 20100115
  Serious: Yes (Hospitalization)
  Sender: FDA-Public Use
  Company Number: B0580261A

PATIENT
  Age: 39 Year
  Sex: Female

DRUGS (2)
  1. NARAMIG [Suspect]
     Indication: MIGRAINE
     Dosage: 1UNIT PER DAY
     Route: 048
     Dates: start: 20090603, end: 20090604
  2. TOPREC [Suspect]
     Indication: MIGRAINE
     Dosage: 1UNIT PER DAY
     Route: 065
     Dates: start: 20090603, end: 20090604

REACTIONS (6)
  - CHOREA [None]
  - DYSKINESIA [None]
  - HYPERREFLEXIA [None]
  - HYPERTONIA [None]
  - MYOCLONUS [None]
  - TACHYCARDIA [None]
